FAERS Safety Report 7917099-8 (Version None)
Quarter: 2011Q4

REPORT INFORMATION
  Report Type: 
  Country: None (occurrence: None)
  Receive Date: 20111116
  Receipt Date: 20111108
  Transmission Date: 20120403
  Serious: Yes (Life-Threatening, Hospitalization)
  Sender: FDA-Public Use
  Company Number: PL-TYCO HEALTHCARE/MALLINCKRODT-T201102080

PATIENT
  Sex: Female

DRUGS (1)
  1. OPTIRAY 160 [Suspect]
     Indication: COMPUTERISED TOMOGRAM
     Dosage: 50 ML, SINGLE
     Route: 042
     Dates: start: 20111014, end: 20111014

REACTIONS (6)
  - SWOLLEN TONGUE [None]
  - DYSPNOEA [None]
  - BLISTER [None]
  - RASH [None]
  - RESPIRATORY ARREST [None]
  - HYPOAESTHESIA [None]
